FAERS Safety Report 11631483 (Version 1)
Quarter: 2015Q4

REPORT INFORMATION
  Report Type: Spontaneous
  Country: IT (occurrence: IT)
  Receive Date: 20151015
  Receipt Date: 20151015
  Transmission Date: 20160304
  Serious: No
  Sender: FDA-Public Use
  Company Number: IT-GLENMARK PHARMACEUTICALS INC, USA.-2015GMK014898

PATIENT
  Age: 60 Year
  Sex: Male

DRUGS (4)
  1. BACLOFEN. [Concomitant]
     Active Substance: BACLOFEN
     Indication: HICCUPS
     Dosage: 50 MG, QD FOR 6 WEEKS
  2. GABAPENTIN. [Suspect]
     Active Substance: GABAPENTIN
     Indication: HICCUPS
     Dosage: 1800 MG, QD FOR 8 WEEKS
  3. HALOPERIDOL. [Concomitant]
     Active Substance: HALOPERIDOL
     Indication: HICCUPS
     Dosage: 6 MG, QD FOR 6 WEEKS
  4. CHLORPROMAZINE. [Concomitant]
     Active Substance: CHLORPROMAZINE
     Indication: HICCUPS
     Dosage: UPTO 75 MG, QD FOR 4 WEEKS

REACTIONS (2)
  - Off label use [Unknown]
  - Somnolence [Unknown]
